FAERS Safety Report 24577878 (Version 2)
Quarter: 2024Q4

REPORT INFORMATION
  Report Type: Spontaneous
  Country: US (occurrence: US)
  Receive Date: 20241104
  Receipt Date: 20241105
  Transmission Date: 20250115
  Serious: No
  Sender: MERCK
  Company Number: US-009507513-2410USA010072

PATIENT
  Sex: Male

DRUGS (3)
  1. WINREVAIR [Suspect]
     Active Substance: SOTATERCEPT-CSRK
     Indication: Product used for unknown indication
     Dosage: UNK
  2. REMODULIN [Suspect]
     Active Substance: TREPROSTINIL
     Indication: Pulmonary arterial hypertension
     Dosage: 0.070 MICROGRAM PER KILOGRAM
     Route: 041
     Dates: start: 202103
  3. ADEMPAS [Concomitant]
     Active Substance: RIOCIGUAT
     Dosage: UNK

REACTIONS (4)
  - Haemoglobin decreased [Unknown]
  - Peripheral swelling [Unknown]
  - Pain in extremity [Unknown]
  - Sleep disorder [Unknown]
